FAERS Safety Report 7843977-4 (Version None)
Quarter: 2011Q4

REPORT INFORMATION
  Report Type: 
  Country: None (occurrence: None)
  Receive Date: 20111025
  Receipt Date: 20111020
  Transmission Date: 20120403
  Serious: Yes (Life-Threatening, Hospitalization)
  Sender: FDA-Public Use
  Company Number: PHHY2011GB77566

PATIENT
  Age: 42 Year
  Sex: Male

DRUGS (2)
  1. GENTAMICIN [Concomitant]
     Indication: SEPSIS
  2. METRONIDAZOLE [Suspect]
     Dosage: UNK
     Route: 048
     Dates: start: 20110729, end: 20110729

REACTIONS (13)
  - HYPERSENSITIVITY [None]
  - EAR PAIN [None]
  - THROAT TIGHTNESS [None]
  - CHILLS [None]
  - DIARRHOEA [None]
  - BACK PAIN [None]
  - ANAPHYLACTIC SHOCK [None]
  - HYPOTENSION [None]
  - PARAESTHESIA ORAL [None]
  - PARAESTHESIA [None]
  - VOMITING [None]
  - COUGH [None]
  - RENAL FAILURE [None]
